FAERS Safety Report 13195840 (Version 1)
Quarter: 2017Q1

REPORT INFORMATION
  Report Type: Spontaneous
  Country: US (occurrence: US)
  Receive Date: 20170207
  Receipt Date: 20170207
  Transmission Date: 20170428
  Serious: Yes (Hospitalization)
  Sender: FDA-Public Use
  Company Number: None

PATIENT
  Age: 80 Year
  Sex: Male

DRUGS (10)
  1. LEXAPRO [Suspect]
     Active Substance: ESCITALOPRAM OXALATE
     Route: 048
  2. CLONAZEPAM. [Concomitant]
     Active Substance: CLONAZEPAM
  3. ASPIRIN. [Concomitant]
     Active Substance: ASPIRIN
  4. CARVEDILOL. [Concomitant]
     Active Substance: CARVEDILOL
  5. TIOTROPIUM [Concomitant]
     Active Substance: TIOTROPIUM
  6. DIAEPAM [Concomitant]
  7. ALBUTEROL. [Concomitant]
     Active Substance: ALBUTEROL
  8. LACTOBACILLUS [Concomitant]
     Active Substance: LACTOBACILLUS ACIDOPHILUS
  9. BUPROPION. [Concomitant]
     Active Substance: BUPROPION
  10. WARFARIN [Concomitant]
     Active Substance: WARFARIN

REACTIONS (1)
  - Hyponatraemia [None]

NARRATIVE: CASE EVENT DATE: 20161030
